FAERS Safety Report 10776159 (Version 1)
Quarter: 2015Q1

REPORT INFORMATION
  Report Type: Spontaneous
  Country: US (occurrence: None)
  Receive Date: 20150205
  Receipt Date: 20150205
  Transmission Date: 20150721
  Serious: No
  Sender: FDA-Public Use
  Company Number: None

PATIENT
  Age: 46 Year
  Sex: Female
  Weight: 81.65 kg

DRUGS (2)
  1. PEROXIE CARE TARTAR CONTROL HEALTHY GUMS BAKING SODA AND PEROXIDE [Suspect]
     Active Substance: SODIUM FLUORIDE
     Indication: DENTAL CARE
     Dates: start: 20141217, end: 20150202
  2. PEROXIE CARE TARTAR CONTROL HEALTHY GUMS BAKING SODA AND PEROXIDE [Suspect]
     Active Substance: SODIUM FLUORIDE
     Indication: GINGIVITIS
     Dates: start: 20141217, end: 20150202

REACTIONS (6)
  - Toothache [None]
  - Gingival pain [None]
  - Dry mouth [None]
  - Oral mucosal blistering [None]
  - Dysgeusia [None]
  - Chapped lips [None]

NARRATIVE: CASE EVENT DATE: 20150202
